FAERS Safety Report 4961566-6 (Version None)
Quarter: 2006Q1

REPORT INFORMATION
  Report Type: 
  Country: None (occurrence: None)
  Receive Date: 20060329
  Receipt Date: 20060320
  Transmission Date: 20060701
  Serious: Yes (Congenital Anomaly)
  Sender: FDA-Public Use
  Company Number: 2005169950

PATIENT
  Weight: 2.705 kg

DRUGS (8)
  1. VIRACEPT [Suspect]
     Indication: HIV TEST POSITIVE
     Dosage: 2250 MG, ORAL
     Route: 048
     Dates: start: 20030428, end: 20030503
  2. VIRACEPT [Suspect]
     Indication: HIV TEST POSITIVE
     Dosage: 2250 MG, ORAL
     Route: 048
     Dates: start: 20030509, end: 20031006
  3. VIRACEPT [Suspect]
     Indication: HIV TEST POSITIVE
     Dosage: 2250 MG, ORAL
     Route: 048
     Dates: start: 20031009, end: 20031111
  4. EPIVIR [Suspect]
     Indication: HIV TEST POSITIVE
     Dosage: 300 MG, ORAL
     Route: 048
     Dates: start: 20030428, end: 20031006
  5. EPIVIR [Suspect]
     Indication: HIV TEST POSITIVE
     Dosage: 300 MG, ORAL
     Route: 048
     Dates: start: 20031009, end: 20031111
  6. RETROVIR [Suspect]
     Indication: HIV TEST POSITIVE
     Dosage: 400 MG, ORAL
     Route: 048
     Dates: start: 20030522, end: 20031006
  7. RETROVIR [Suspect]
     Indication: HIV TEST POSITIVE
     Dosage: 400 MG, ORAL
     Route: 048
     Dates: start: 20031009, end: 20031111
  8. ZERIT [Suspect]
     Indication: HIV TEST POSITIVE
     Dosage: 60 MG, ORAL
     Route: 048
     Dates: start: 20030428, end: 20030527

REACTIONS (2)
  - CONGENITAL HYDRONEPHROSIS [None]
  - DRUG EXPOSURE DURING PREGNANCY [None]
